FAERS Safety Report 9003650 (Version 1)
Quarter: 2013Q1

REPORT INFORMATION
  Report Type: Spontaneous
  Country: US (occurrence: US)
  Receive Date: 20130108
  Receipt Date: 20130108
  Transmission Date: 20140127
  Serious: No
  Sender: FDA-Public Use
  Company Number: US-GLAXOSMITHKLINE-A0952624A

PATIENT
  Age: 63 Year
  Sex: Male

DRUGS (9)
  1. LOVAZA [Suspect]
     Indication: CARDIOVASCULAR EVENT PROPHYLAXIS
     Dosage: 2000MG PER DAY
     Route: 048
     Dates: start: 201101
  2. FISH OIL [Suspect]
     Indication: CARDIOVASCULAR EVENT PROPHYLAXIS
     Dosage: 1000MG PER DAY
     Route: 048
     Dates: start: 2009
  3. SIMVASTATIN [Concomitant]
  4. AGGRENOX [Concomitant]
  5. LISINOPRIL [Concomitant]
  6. ATENOLOL [Concomitant]
  7. MULTIVITAMIN [Concomitant]
  8. CALCIUM WITH VITAMIN D [Concomitant]
  9. VITAMIN C [Concomitant]

REACTIONS (3)
  - Therapeutic response unexpected [Unknown]
  - Memory impairment [Unknown]
  - Sleep disorder [Unknown]
